FAERS Safety Report 4475131-0 (Version None)
Quarter: 2004Q3

REPORT INFORMATION
  Report Type: 
  Country: None (occurrence: None)
  Receive Date: 20040923
  Receipt Date: 20040623
  Transmission Date: 20050211
  Serious: No
  Sender: FDA-Public Use
  Company Number: USA040670912

PATIENT
  Age: 73 Year
  Sex: Female
  Weight: 80 kg

DRUGS (4)
  1. FORTEO [Suspect]
     Indication: OSTEOPOROSIS
     Dosage: 20 UG/1 DAY
     Dates: start: 20040401
  2. CELEBREX [Concomitant]
  3. ALTACE [Concomitant]
  4. CALCIUM PLUS D [Concomitant]

REACTIONS (2)
  - MEDICATION ERROR [None]
  - OVERDOSE [None]
